FAERS Safety Report 5278239-5 (Version None)
Quarter: 2007Q1

REPORT INFORMATION
  Report Type: 
  Country: None (occurrence: None)
  Receive Date: 20070328
  Receipt Date: 20070323
  Transmission Date: 20070707
  Serious: Yes (Hospitalization)
  Sender: FDA-Public Use
  Company Number: FRWYE165923MAR07

PATIENT
  Age: 7 Year
  Sex: Female
  Weight: 23 kg

DRUGS (5)
  1. ADVIL [Suspect]
     Dosage: UNKNOWN
     Route: 048
     Dates: start: 20070121
  2. ACETAMINOPHEN [Concomitant]
     Indication: HORDEOLUM
     Dosage: UNKNOWN
     Dates: start: 20070120
  3. ACETAMINOPHEN [Concomitant]
     Indication: CONJUNCTIVITIS
  4. FUCITHALMIC [Concomitant]
     Indication: CONJUNCTIVITIS
     Dosage: UNKNOWN
     Dates: start: 20070120
  5. FUCITHALMIC [Concomitant]
     Indication: HORDEOLUM

REACTIONS (6)
  - ACUTE SINUSITIS [None]
  - APATHY [None]
  - EMPYEMA [None]
  - EXOPHTHALMOS [None]
  - EYE MOVEMENT DISORDER [None]
  - STREPTOCOCCAL INFECTION [None]
